FAERS Safety Report 23940858 (Version 1)
Quarter: 2024Q2

REPORT INFORMATION
  Report Type: Spontaneous
  Country: US (occurrence: US)
  Receive Date: 20240605
  Receipt Date: 20240605
  Transmission Date: 20240715
  Serious: No
  Sender: FDA-Public Use
  Company Number: US-GLENMARK PHARMACEUTICALS-2024GMK089932

PATIENT

DRUGS (3)
  1. RYALTRIS [Suspect]
     Active Substance: MOMETASONE FUROATE MONOHYDRATE\OLOPATADINE HYDROCHLORIDE
     Indication: Allergic sinusitis
     Dosage: 1 DOSAGE FORM, BID (1 DOSAGE FORM, BID(1 SPRAY IN EACH NOSTRIL TWICE DAILY)
     Route: 045
     Dates: start: 20240311
  2. RYALTRIS [Suspect]
     Active Substance: MOMETASONE FUROATE MONOHYDRATE\OLOPATADINE HYDROCHLORIDE
     Dosage: 1 DOSAGE FORM, BID (1 SPRAY IN EACH NOSTRIL TWICE A DAY)
     Route: 045
     Dates: start: 20240318
  3. RYALTRIS [Suspect]
     Active Substance: MOMETASONE FUROATE MONOHYDRATE\OLOPATADINE HYDROCHLORIDE
     Dosage: 1 DOSAGE FORM, BID (1 SPRAY IN EACH NOSTRIL TWICE A DAY)
     Route: 045
     Dates: start: 20240322

REACTIONS (8)
  - Epistaxis [Unknown]
  - Product use in unapproved indication [Unknown]
  - Product use issue [Unknown]
  - Drug dose omission by device [Unknown]
  - Product communication issue [Unknown]
  - Device delivery system issue [Unknown]
  - Product tampering [Unknown]
  - Device occlusion [Unknown]
